FAERS Safety Report 6060914-6 (Version None)
Quarter: 2009Q1

REPORT INFORMATION
  Report Type: 
  Country: None (occurrence: None)
  Receive Date: 20090202
  Receipt Date: 20090127
  Transmission Date: 20090719
  Serious: Yes (Life-Threatening)
  Sender: FDA-Public Use
  Company Number: US-BAYER-200911922NA

PATIENT
  Age: 48 Year
  Sex: Female

DRUGS (1)
  1. AVELOX [Suspect]
     Indication: LOBAR PNEUMONIA
     Dates: start: 20090116

REACTIONS (2)
  - HEPATIC FAILURE [None]
  - JAUNDICE [None]
